FAERS Safety Report 23017454 (Version 1)
Quarter: 2023Q4

REPORT INFORMATION
  Report Type: Spontaneous
  Country: US (occurrence: US)
  Receive Date: 20231003
  Receipt Date: 20231003
  Transmission Date: 20240110
  Serious: Yes (Other)
  Sender: FDA-Public Use
  Company Number: US-BAYER-2023A137801

PATIENT
  Age: 72 Year
  Sex: Male

DRUGS (2)
  1. RIVAROXABAN [Interacting]
     Active Substance: RIVAROXABAN
     Indication: Product used for unknown indication
     Dosage: 20 MG, QD
     Route: 048
  2. CLOPIDOGREL [Interacting]
     Active Substance: CLOPIDOGREL BISULFATE
     Dosage: 75 MG, QD

REACTIONS (2)
  - Vascular pseudoaneurysm [Unknown]
  - Labelled drug-drug interaction medication error [Unknown]
